FAERS Safety Report 10777309 (Version 1)
Quarter: 2015Q1

REPORT INFORMATION
  Report Type: Spontaneous
  Country: IT (occurrence: IT)
  Receive Date: 20150209
  Receipt Date: 20150209
  Transmission Date: 20150721
  Serious: Yes (Hospitalization)
  Sender: FDA-Public Use
  Company Number: PHHY2015IT013402

PATIENT
  Age: 49 Year
  Sex: Female

DRUGS (5)
  1. DIOSMIN /HESPERIDIN [Concomitant]
     Indication: PRODUCT USED FOR UNKNOWN INDICATION
     Route: 065
  2. MIRTILENE [Concomitant]
     Indication: PRODUCT USED FOR UNKNOWN INDICATION
     Route: 065
  3. DROSPIRENONE+ETHINYLESTRADIOL [Suspect]
     Active Substance: DROSPIRENONE\ETHINYL ESTRADIOL
     Indication: PRODUCT USED FOR UNKNOWN INDICATION
     Route: 065
  4. NIMESULIDE [Suspect]
     Active Substance: NIMESULIDE
     Indication: HEADACHE
     Route: 065
  5. NIMESULIDE [Suspect]
     Active Substance: NIMESULIDE
     Indication: NECK PAIN

REACTIONS (8)
  - Subarachnoid haemorrhage [Unknown]
  - Oedema [Unknown]
  - Haemorrhagic infarction [Unknown]
  - Head injury [Unknown]
  - Transverse sinus thrombosis [Unknown]
  - Loss of consciousness [Unknown]
  - Confusional state [Unknown]
  - Epilepsy [Unknown]
